FAERS Safety Report 7268725-0 (Version None)
Quarter: 2011Q1

REPORT INFORMATION
  Report Type: 
  Country: None (occurrence: None)
  Receive Date: 20110201
  Receipt Date: 20110128
  Transmission Date: 20110831
  Serious: Yes (Death, Hospitalization, Other)
  Sender: FDA-Public Use
  Company Number: GB-ELI_LILLY_AND_COMPANY-GB201012003944

PATIENT
  Age: 71 Year
  Sex: Female
  Weight: 80 kg

DRUGS (8)
  1. BYETTA [Suspect]
     Dosage: UNK, UNK
     Dates: start: 20101001
  2. METFORMIN HCL [Concomitant]
  3. ACE INHIBITORS [Concomitant]
  4. AMLODIPINE [Concomitant]
  5. SIMVASTATIN [Concomitant]
  6. ASPIRIN [Concomitant]
  7. ATENOLOL [Concomitant]
  8. BENDROFLUAZIDE [Concomitant]

REACTIONS (2)
  - LACTIC ACIDOSIS [None]
  - RENAL FAILURE ACUTE [None]
